FAERS Safety Report 9343086 (Version 2)
Quarter: 2013Q2

REPORT INFORMATION
  Report Type: Spontaneous
  Country: DK (occurrence: DK)
  Receive Date: 20130611
  Receipt Date: 20130626
  Transmission Date: 20140414
  Serious: Yes (Hospitalization, Disabling)
  Sender: FDA-Public Use
  Company Number: PHHY2013DK058315

PATIENT
  Age: 15 Year
  Sex: Female

DRUGS (1)
  1. NOVYNETTE [Suspect]
     Indication: MENSTRUATION IRREGULAR
     Route: 048
     Dates: start: 200904

REACTIONS (11)
  - Hemiparesis [Recovered/Resolved]
  - Dehydration [Recovered/Resolved]
  - Apathy [Unknown]
  - Diarrhoea [Recovered/Resolved]
  - Fatigue [Unknown]
  - Cerebral thrombosis [Recovered/Resolved with Sequelae]
  - Somnolence [Recovered/Resolved]
  - Headache [Unknown]
  - Asthenia [Unknown]
  - Vomiting [Recovered/Resolved]
  - Intracranial venous sinus thrombosis [Recovered/Resolved]
